FAERS Safety Report 4708848-0 (Version None)
Quarter: 2005Q3

REPORT INFORMATION
  Report Type: 
  Country: None (occurrence: None)
  Receive Date: 20050705
  Receipt Date: 20050620
  Transmission Date: 20060218
  Serious: Yes (Death, Other)
  Sender: FDA-Public Use
  Company Number: 2005FR-00045

PATIENT
  Age: 63 Year
  Sex: Male
  Weight: 75 kg

DRUGS (9)
  1. ASPIRIN [Suspect]
     Indication: MYOCARDIAL ISCHAEMIA
     Dosage: 75 MG, DAILY, ORAL
     Route: 048
     Dates: end: 20050610
  2. DAPSONE [Concomitant]
  3. VALSARTAN [Concomitant]
  4. QUININE SULPHATE [Concomitant]
  5. SEVREDOL [Concomitant]
  6. ATORVASTATIN CALCIUM [Concomitant]
  7. DOMPERIDONE [Concomitant]
  8. MORPHINE SULFATE [Concomitant]
  9. MST [Concomitant]

REACTIONS (1)
  - HAEMOLYTIC ANAEMIA [None]
